FAERS Safety Report 18880288 (Version 2)
Quarter: 2021Q1

REPORT INFORMATION
  Report Type: Report from Study
  Country: GB (occurrence: GB)
  Receive Date: 20210211
  Receipt Date: 20210217
  Transmission Date: 20210420
  Serious: No
  Sender: FDA-Public Use
  Company Number: GB-SAMSUNG BIOEPIS-SB-2021-01813

PATIENT
  Age: 55 Year
  Sex: Female

DRUGS (1)
  1. IMRALDI [Suspect]
     Active Substance: ADALIMUMAB
     Indication: RHEUMATOID ARTHRITIS
     Route: 058
     Dates: start: 20210107

REACTIONS (7)
  - Fatigue [Not Recovered/Not Resolved]
  - Dizziness [Unknown]
  - Eructation [Unknown]
  - Rheumatoid arthritis [Recovering/Resolving]
  - Seasonal allergy [Unknown]
  - Headache [Unknown]
  - Sinusitis [Unknown]

NARRATIVE: CASE EVENT DATE: 20210121
